FAERS Safety Report 9062746 (Version 2)
Quarter: 2013Q2

REPORT INFORMATION
  Report Type: Spontaneous
  Country: US (occurrence: US)
  Receive Date: 20130213
  Receipt Date: 20130404
  Transmission Date: 20140414
  Serious: No
  Sender: FDA-Public Use
  Company Number: US-PFIZER INC-2013054628

PATIENT
  Age: 62 Year
  Sex: Female

DRUGS (1)
  1. SOMAVERT [Suspect]
     Indication: HYPOTHALAMO-PITUITARY DISORDER
     Dosage: 10 MG, DAILY
     Route: 058
     Dates: start: 20130123

REACTIONS (3)
  - Headache [Unknown]
  - Nausea [Unknown]
  - Vomiting [Unknown]
